FAERS Safety Report 5391897-X (Version None)
Quarter: 2007Q3

REPORT INFORMATION
  Report Type: 
  Country: None (occurrence: None)
  Receive Date: 20070718
  Receipt Date: 20070712
  Transmission Date: 20080115
  Serious: Yes (Life-Threatening, Hospitalization)
  Sender: FDA-Public Use
  Company Number: 2007-00701

PATIENT
  Age: 78 Year
  Sex: Female

DRUGS (10)
  1. VELCADE [Suspect]
     Indication: MULTIPLE MYELOMA
     Dosage: 1.30 MG/M2, ,INTRAVENOUS
     Route: 042
     Dates: start: 20061107, end: 20070302
  2. DOXIL [Suspect]
     Indication: MULTIPLE MYELOMA
     Dosage: 30.00 MG/M2, , INTRAVENOUS
     Route: 042
     Dates: start: 20061107, end: 20070223
  3. DEXAMETHASONE [Suspect]
     Indication: MULTIPLE MYELOMA
     Dosage: 20.00 MG, , ORAL
     Route: 048
     Dates: start: 20061107, end: 20070303
  4. ACETYLSALICYLIC ACID SRT [Concomitant]
  5. SYNTHROID [Concomitant]
  6. MUCOMYST [Concomitant]
  7. CLOTRIMAZOLE [Concomitant]
  8. HEPARIN [Concomitant]
  9. ACYCLOVIR [Concomitant]
  10. PANTOPRAZOLE SODIUM [Concomitant]

REACTIONS (5)
  - ARTERIAL INSUFFICIENCY [None]
  - ECHOCARDIOGRAM ABNORMAL [None]
  - HYPOKINESIA [None]
  - LEFT VENTRICULAR FAILURE [None]
  - SUPRAVENTRICULAR TACHYCARDIA [None]
